FAERS Safety Report 15593211 (Version 3)
Quarter: 2019Q3

REPORT INFORMATION
  Report Type: Spontaneous
  Country: FR (occurrence: FR)
  Receive Date: 20181107
  Receipt Date: 20190923
  Transmission Date: 20191004
  Serious: Yes (Other)
  Sender: FDA-Public Use
  Company Number: FR-GILEAD-2018-0371631

PATIENT
  Age: 55 Year
  Sex: Female

DRUGS (2)
  1. HYDROCORTISONE. [Concomitant]
     Active Substance: HYDROCORTISONE
     Indication: ADRENAL INSUFFICIENCY
     Dosage: 10 TO 20 MG/DAY
     Dates: start: 2014
  2. GENVOYA [Suspect]
     Active Substance: COBICISTAT\ELVITEGRAVIR\EMTRICITABINE\TENOFOVIR ALAFENAMIDE FUMARATE
     Indication: HIV INFECTION
     Dosage: UNK
     Route: 065
     Dates: start: 20170612, end: 20181023

REACTIONS (3)
  - Blood HIV RNA increased [Recovered/Resolved]
  - Drug ineffective [Recovered/Resolved]
  - Adrenal insufficiency [Recovering/Resolving]
